FAERS Safety Report 8273993-2 (Version None)
Quarter: 2012Q2

REPORT INFORMATION
  Report Type: 
  Country: None (occurrence: None)
  Receive Date: 20120411
  Receipt Date: 20120402
  Transmission Date: 20120825
  Serious: Yes (Hospitalization)
  Sender: FDA-Public Use
  Company Number: FR-JNJFOC-20120400398

PATIENT
  Sex: Female
  Weight: 75 kg

DRUGS (9)
  1. SECTRAL [Concomitant]
     Route: 048
  2. IRBESARTAN [Concomitant]
     Route: 048
  3. ACETAMINOPHEN [Concomitant]
     Route: 042
  4. FLECAINIDE ACETATE [Concomitant]
     Route: 048
  5. XARELTO [Suspect]
     Indication: THROMBOSIS PROPHYLAXIS
     Route: 048
     Dates: start: 20120217, end: 20120221
  6. XARELTO [Suspect]
     Indication: HIP ARTHROPLASTY
     Route: 048
     Dates: start: 20120217, end: 20120221
  7. RABEPRAZOLE SODIUM [Concomitant]
     Route: 048
     Dates: start: 20120217
  8. LEVOTHYROXINE SODIUM [Concomitant]
     Route: 048
  9. ASPIRIN [Concomitant]
     Route: 048

REACTIONS (2)
  - DEEP VEIN THROMBOSIS [None]
  - DRUG INEFFECTIVE [None]
